FAERS Safety Report 5409928-7 (Version None)
Quarter: 2007Q3

REPORT INFORMATION
  Report Type: 
  Country: None (occurrence: None)
  Receive Date: 20070809
  Receipt Date: 20070731
  Transmission Date: 20080115
  Serious: Yes (Other)
  Sender: FDA-Public Use
  Company Number: JP-PFIZER INC-2007034229

PATIENT
  Age: 24 Year
  Sex: Female

DRUGS (3)
  1. DOSTINEX [Suspect]
     Indication: HYPERPROLACTINAEMIA
     Dosage: TEXT:4 TABLETS
     Route: 048
     Dates: start: 20070328, end: 20070328
  2. TRANSAMIN [Concomitant]
  3. ADONA [Concomitant]

REACTIONS (1)
  - HYPOACUSIS [None]
